FAERS Safety Report 5730040-1 (Version None)
Quarter: 2008Q2

REPORT INFORMATION
  Report Type: 
  Country: None (occurrence: None)
  Receive Date: 20080507
  Receipt Date: 20080429
  Transmission Date: 20081010
  Serious: Yes (Hospitalization)
  Sender: FDA-Public Use
  Company Number: US-JNJFOC-20080500086

PATIENT
  Sex: Male
  Weight: 108.86 kg

DRUGS (4)
  1. REMICADE [Suspect]
     Indication: COLITIS ULCERATIVE
     Route: 042
  2. LOTRELL [Concomitant]
     Indication: BLOOD PRESSURE
  3. MESALAMINE [Concomitant]
     Indication: COLITIS ULCERATIVE
  4. NAPROXYNE [Concomitant]
     Indication: BACK PAIN

REACTIONS (2)
  - ATRIAL FIBRILLATION [None]
  - PNEUMOCYSTIS JIROVECI PNEUMONIA [None]
